FAERS Safety Report 9543293 (Version 4)
Quarter: 2014Q1

REPORT INFORMATION
  Report Type: Spontaneous
  Country: JP (occurrence: JP)
  Receive Date: 20130923
  Receipt Date: 20140127
  Transmission Date: 20141002
  Serious: Yes (Death, Hospitalization, Other)
  Sender: FDA-Public Use
  Company Number: PHHY2012JP084508

PATIENT
  Age: 51 Year
  Sex: Male
  Weight: 40 kg

DRUGS (2)
  1. GLIVEC [Suspect]
     Indication: GASTROINTESTINAL STROMAL TUMOUR
     Dosage: 400 MG, DAILY
     Route: 048
     Dates: start: 20120106
  2. GLIVEC [Suspect]
     Dosage: 400 MG, DAILY
     Route: 048
     Dates: end: 20120925

REACTIONS (9)
  - Interstitial lung disease [Fatal]
  - Pyrexia [Fatal]
  - Cough [Fatal]
  - Cell marker increased [Fatal]
  - Lung disorder [Fatal]
  - Bronchopneumonia [Fatal]
  - Acute respiratory failure [Fatal]
  - Gastrointestinal stromal tumour [Unknown]
  - Neoplasm recurrence [Unknown]
